FAERS Safety Report 15753164 (Version 2)
Quarter: 2021Q2

REPORT INFORMATION
  Report Type: Spontaneous
  Country: FR (occurrence: FR)
  Receive Date: 20181222
  Receipt Date: 20210420
  Transmission Date: 20210716
  Serious: Yes (Hospitalization, Other)
  Sender: FDA-Public Use
  Company Number: FR-AUROBINDO-AUR-APL-2018-060795

PATIENT
  Age: 36 Year
  Sex: Male

DRUGS (4)
  1. PIPERACILLINE [Suspect]
     Active Substance: PIPERACILLIN SODIUM
     Indication: OSTEITIS
     Dosage: 16 GRAM, DAILY
     Route: 042
     Dates: start: 20180914, end: 20181115
  2. PARACETAMOL [Suspect]
     Active Substance: ACETAMINOPHEN
     Indication: PAIN
     Dosage: UNK
     Route: 065
     Dates: start: 20180910
  3. HELICIDINE [Suspect]
     Active Substance: ESCARGOT
     Indication: COUGH
     Dosage: UNK
     Route: 048
     Dates: start: 20181023, end: 20181027
  4. TAZOBACTAM [Suspect]
     Active Substance: TAZOBACTAM
     Indication: OSTEITIS
     Dosage: 16 GRAM, DAILY
     Route: 042
     Dates: start: 20180914, end: 20181115

REACTIONS (1)
  - Drug reaction with eosinophilia and systemic symptoms [Recovering/Resolving]

NARRATIVE: CASE EVENT DATE: 20181114
